FAERS Safety Report 19129124 (Version 2)
Quarter: 2021Q4

REPORT INFORMATION
  Report Type: Spontaneous
  Country: US (occurrence: US)
  Receive Date: 20210413
  Receipt Date: 20211027
  Transmission Date: 20220303
  Serious: No
  Sender: FDA-Public Use
  Company Number: US-SA-2021SA120142

PATIENT
  Sex: Female

DRUGS (6)
  1. DUPIXENT [Suspect]
     Active Substance: DUPILUMAB
     Indication: Dermatitis atopic
     Dosage: 300 MG
     Route: 058
  2. VITAMIN D NOS [Concomitant]
     Active Substance: VITAMIN D NOS
     Dosage: UNK
  3. METFORMIN HYDROCHLORIDE [Concomitant]
     Active Substance: METFORMIN HYDROCHLORIDE
     Dosage: UNK
  4. DEVICE [Concomitant]
     Active Substance: DEVICE
     Dosage: UNK
  5. DESOXIMETASONE [Concomitant]
     Active Substance: DESOXIMETASONE
     Dosage: UNK
  6. PIMECROLIMUS [Concomitant]
     Active Substance: PIMECROLIMUS
     Indication: Dermatitis atopic
     Dosage: UNK

REACTIONS (3)
  - Vision blurred [Unknown]
  - Dermatitis atopic [Unknown]
  - Rash [Unknown]
